FAERS Safety Report 5324229-3 (Version None)
Quarter: 2007Q2

REPORT INFORMATION
  Report Type: 
  Country: None (occurrence: None)
  Receive Date: 20070514
  Receipt Date: 20070514
  Transmission Date: 20071010
  Serious: Yes (Death, Hospitalization, Other)
  Sender: FDA-Public Use
  Company Number: US-BRISTOL-MYERS SQUIBB COMPANY-13296058

PATIENT
  Age: 76 Year
  Sex: Female
  Weight: 92 kg

DRUGS (11)
  1. PACLITAXEL [Suspect]
     Indication: NON-SMALL CELL LUNG CANCER
     Route: 042
     Dates: start: 20051222, end: 20051222
  2. CARBOPLATIN [Suspect]
     Indication: NON-SMALL CELL LUNG CANCER
     Route: 042
     Dates: start: 20051222, end: 20051222
  3. TLK286 [Suspect]
     Indication: NON-SMALL CELL LUNG CANCER
     Route: 042
     Dates: start: 20051222, end: 20051222
  4. FOSAMAX [Concomitant]
  5. ATENOLOL [Concomitant]
  6. HYDROCHLOROTHIAZIDE [Concomitant]
  7. ANZEMET [Concomitant]
  8. COMPAZINE [Concomitant]
     Route: 048
  9. ALLOPURINOL [Concomitant]
  10. MAGNESIUM OXIDE [Concomitant]
     Route: 048
  11. POTASSIUM CHLORIDE [Concomitant]
     Route: 048

REACTIONS (13)
  - ANOREXIA [None]
  - ARTHRALGIA [None]
  - BRADYCARDIA [None]
  - CARDIO-RESPIRATORY ARREST [None]
  - COMA [None]
  - CONSTIPATION [None]
  - DYSARTHRIA [None]
  - DYSPNOEA AT REST [None]
  - FACIAL PALSY [None]
  - HYPOTENSION [None]
  - HYPOXIA [None]
  - MALIGNANT NEOPLASM PROGRESSION [None]
  - PANCYTOPENIA [None]
